FAERS Safety Report 5419572-3 (Version None)
Quarter: 2007Q3

REPORT INFORMATION
  Report Type: 
  Country: None (occurrence: None)
  Receive Date: 20070815
  Receipt Date: 20070815
  Transmission Date: 20080115
  Serious: Yes (Life-Threatening, Other)
  Sender: FDA-Public Use
  Company Number: None

PATIENT
  Age: 60 Year
  Sex: Male
  Weight: 90.7194 kg

DRUGS (2)
  1. CELEBREX [Suspect]
     Indication: LIGAMENT RUPTURE
     Dates: start: 20050720, end: 20050720
  2. CELEBREX [Suspect]
     Indication: UPPER LIMB FRACTURE
     Dates: start: 20050720, end: 20050720

REACTIONS (4)
  - CHEST PAIN [None]
  - DYSPNOEA [None]
  - HEART RATE IRREGULAR [None]
  - MOBILITY DECREASED [None]
